FAERS Safety Report 24223698 (Version 6)
Quarter: 2025Q1

REPORT INFORMATION
  Report Type: Report from Study
  Country: US (occurrence: US)
  Receive Date: 20240819
  Receipt Date: 20250115
  Transmission Date: 20250409
  Serious: Yes (Hospitalization)
  Sender: ABBVIE
  Company Number: US-ABBVIE-5880080

PATIENT
  Age: 69 Year
  Sex: Female

DRUGS (4)
  1. CREON [Suspect]
     Active Substance: PANCRELIPASE AMYLASE\PANCRELIPASE LIPASE\PANCRELIPASE PROTEASE
     Indication: Weight decreased
     Route: 048
     Dates: start: 20240523
  2. CREON [Suspect]
     Active Substance: PANCRELIPASE AMYLASE\PANCRELIPASE LIPASE\PANCRELIPASE PROTEASE
     Indication: Weight decreased
     Route: 048
     Dates: start: 20240823
  3. CREON [Suspect]
     Active Substance: PANCRELIPASE AMYLASE\PANCRELIPASE LIPASE\PANCRELIPASE PROTEASE
     Indication: Weight decreased
     Route: 048
     Dates: start: 202312
  4. CREON [Suspect]
     Active Substance: PANCRELIPASE AMYLASE\PANCRELIPASE LIPASE\PANCRELIPASE PROTEASE
     Indication: Weight decreased
     Route: 048
     Dates: start: 20240601

REACTIONS (13)
  - Pneumonia [Recovered/Resolved]
  - Feeding disorder [Unknown]
  - Dyspepsia [Unknown]
  - Diarrhoea [Unknown]
  - Infection [Recovering/Resolving]
  - Haematemesis [Recovering/Resolving]
  - Weight decreased [Unknown]
  - Haemoptysis [Unknown]
  - Malnutrition [Unknown]
  - Throat irritation [Unknown]
  - Thrombosis [Unknown]
  - Immunodeficiency [Unknown]
  - Pneumonia [Recovering/Resolving]

NARRATIVE: CASE EVENT DATE: 20240101
